FAERS Safety Report 19143708 (Version 2)
Quarter: 2021Q3

REPORT INFORMATION
  Report Type: Spontaneous
  Country: CA (occurrence: CA)
  Receive Date: 20210416
  Receipt Date: 20210823
  Transmission Date: 20211014
  Serious: Yes (Hospitalization, Other)
  Sender: FDA-Public Use
  Company Number: CA-TEVA-2021-CA-1900823

PATIENT
  Age: 35 Year
  Sex: Male

DRUGS (49)
  1. CLONAZEPAM. [Interacting]
     Active Substance: CLONAZEPAM
     Route: 065
  2. QUETIAPINE FUMARATE. [Interacting]
     Active Substance: QUETIAPINE FUMARATE
     Indication: POOR QUALITY SLEEP
     Route: 048
  3. VORTIOXETINE. [Concomitant]
     Active Substance: VORTIOXETINE
     Indication: ANTIDEPRESSANT THERAPY
     Dosage: 10 MILLIGRAM DAILY;
     Route: 048
  4. CLONAZEPAM. [Interacting]
     Active Substance: CLONAZEPAM
     Indication: DYSTONIA
     Route: 065
  5. ABILIFY [Interacting]
     Active Substance: ARIPIPRAZOLE
     Indication: PSYCHOTIC DISORDER
     Route: 065
  6. ABILIFY [Interacting]
     Active Substance: ARIPIPRAZOLE
     Route: 065
  7. QUETIAPINE FUMARATE. [Interacting]
     Active Substance: QUETIAPINE FUMARATE
     Route: 048
  8. OXAZEPAM. [Interacting]
     Active Substance: OXAZEPAM
     Indication: BIPOLAR DISORDER
     Route: 065
  9. LITHIUM. [Interacting]
     Active Substance: LITHIUM
     Indication: AFFECTIVE DISORDER
     Route: 048
  10. LITHIUM CARBONATE. [Suspect]
     Active Substance: LITHIUM CARBONATE
     Indication: AFFECTIVE DISORDER
     Dosage: 900 MILLIGRAM DAILY;
     Route: 048
  11. CLONAZEPAM. [Interacting]
     Active Substance: CLONAZEPAM
     Indication: POOR QUALITY SLEEP
     Route: 065
  12. ZOPICLONE [Interacting]
     Active Substance: ZOPICLONE
     Indication: POOR QUALITY SLEEP
     Route: 065
  13. ARIPIPRAZOLE. [Suspect]
     Active Substance: ARIPIPRAZOLE
     Indication: PSYCHOTIC DISORDER
     Route: 065
  14. TEMAZEPAM. [Interacting]
     Active Substance: TEMAZEPAM
     Route: 065
  15. ARIPIPRAZOLE. [Suspect]
     Active Substance: ARIPIPRAZOLE
     Indication: PSYCHOTIC DISORDER
  16. ZOPICLONE [Interacting]
     Active Substance: ZOPICLONE
     Route: 065
  17. TEMAZEPAM. [Interacting]
     Active Substance: TEMAZEPAM
     Indication: BIPOLAR DISORDER
     Route: 065
  18. NOZINAN [Interacting]
     Active Substance: LEVOMEPROMAZINE
     Indication: POOR QUALITY SLEEP
     Route: 065
  19. NOZINAN [Interacting]
     Active Substance: LEVOMEPROMAZINE
     Indication: BIPOLAR DISORDER
     Route: 065
  20. LITHIUM. [Interacting]
     Active Substance: LITHIUM
     Indication: BIPOLAR DISORDER
     Route: 048
  21. LITHIUM. [Interacting]
     Active Substance: LITHIUM
     Indication: PRODUCT USED FOR UNKNOWN INDICATION
  22. ABILIFY [Interacting]
     Active Substance: ARIPIPRAZOLE
     Route: 065
  23. BENZATROPINE [Suspect]
     Active Substance: BENZTROPINE
     Indication: DYSTONIA
     Route: 065
  24. LORAZEPAM. [Concomitant]
     Active Substance: LORAZEPAM
     Indication: BIPOLAR DISORDER
     Route: 065
  25. CLONAZEPAM. [Suspect]
     Active Substance: CLONAZEPAM
     Indication: PSYCHOTIC DISORDER
     Route: 065
  26. CLONAZEPAM. [Interacting]
     Active Substance: CLONAZEPAM
     Indication: BIPOLAR DISORDER
     Route: 065
  27. ZOPICLONE [Interacting]
     Active Substance: ZOPICLONE
     Indication: BIPOLAR DISORDER
     Route: 065
  28. ZOPICLONE [Interacting]
     Active Substance: ZOPICLONE
     Route: 064
  29. QUETIAPINE FUMARATE. [Interacting]
     Active Substance: QUETIAPINE FUMARATE
     Indication: PSYCHOTIC DISORDER
     Route: 048
  30. TEMAZEPAM. [Interacting]
     Active Substance: TEMAZEPAM
     Indication: POOR QUALITY SLEEP
     Route: 065
  31. OXAZEPAM. [Interacting]
     Active Substance: OXAZEPAM
     Indication: POOR QUALITY SLEEP
     Route: 065
  32. OXAZEPAM. [Interacting]
     Active Substance: OXAZEPAM
     Route: 065
  33. OXAZEPAM. [Interacting]
     Active Substance: OXAZEPAM
     Route: 065
  34. ABILIFY [Interacting]
     Active Substance: ARIPIPRAZOLE
     Route: 030
  35. ABILIFY [Interacting]
     Active Substance: ARIPIPRAZOLE
     Dosage: 10 MILLIGRAM DAILY;
     Route: 048
  36. ABILIFY [Interacting]
     Active Substance: ARIPIPRAZOLE
     Route: 030
  37. METHOTRIMEPRAZINE [Suspect]
     Active Substance: LEVOMEPROMAZINE
     Indication: POOR QUALITY SLEEP
     Route: 065
  38. ARIPIPRAZOLE. [Suspect]
     Active Substance: ARIPIPRAZOLE
     Indication: PRODUCT USED FOR UNKNOWN INDICATION
     Route: 030
  39. SERTRALINE [Concomitant]
     Active Substance: SERTRALINE HYDROCHLORIDE
     Indication: DEPRESSED MOOD
  40. ZOPICLONE [Interacting]
     Active Substance: ZOPICLONE
     Route: 065
  41. QUETIAPINE FUMARATE. [Interacting]
     Active Substance: QUETIAPINE FUMARATE
     Route: 048
  42. ABILIFY [Interacting]
     Active Substance: ARIPIPRAZOLE
     Indication: BIPOLAR DISORDER
     Dosage: 10 MILLIGRAM DAILY;
     Route: 048
  43. ABILIFY [Interacting]
     Active Substance: ARIPIPRAZOLE
     Route: 065
  44. CLONAZEPAM. [Interacting]
     Active Substance: CLONAZEPAM
     Route: 065
  45. QUETIAPINE FUMARATE. [Interacting]
     Active Substance: QUETIAPINE FUMARATE
     Indication: BIPOLAR DISORDER
     Route: 048
  46. ARIPIPRAZOLE. [Suspect]
     Active Substance: ARIPIPRAZOLE
     Indication: PRODUCT USED FOR UNKNOWN INDICATION
     Route: 048
  47. TEMAZEPAM. [Interacting]
     Active Substance: TEMAZEPAM
     Route: 065
  48. SERTRALINE [Concomitant]
     Active Substance: SERTRALINE HYDROCHLORIDE
     Indication: BIPOLAR DISORDER
     Route: 065
  49. BENZTROPINE MESYLATE. [Concomitant]
     Active Substance: BENZTROPINE MESYLATE
     Indication: DYSTONIC TREMOR
     Route: 065

REACTIONS (10)
  - Drug interaction [Unknown]
  - Musculoskeletal stiffness [Unknown]
  - Product use in unapproved indication [Unknown]
  - Restlessness [Unknown]
  - Muscle contracture [Unknown]
  - Tremor [Unknown]
  - Therapeutic product effect incomplete [Unknown]
  - Dystonic tremor [Unknown]
  - Dystonia [Unknown]
  - Drug ineffective [Unknown]
